FAERS Safety Report 11059615 (Version 1)
Quarter: 2015Q2

REPORT INFORMATION
  Report Type: Spontaneous
  Country: BR (occurrence: BR)
  Receive Date: 20150423
  Receipt Date: 20150423
  Transmission Date: 20150821
  Serious: Yes (Congenital Anomaly, Other)
  Sender: FDA-Public Use
  Company Number: BR-PFIZER INC-2015136817

PATIENT

DRUGS (1)
  1. FELDENE [Suspect]
     Active Substance: PIROXICAM
     Indication: HEADACHE
     Dosage: STRENGTH 20 MG
     Route: 064

REACTIONS (2)
  - Ventricular hypoplasia [Unknown]
  - Maternal exposure during pregnancy [Unknown]
